FAERS Safety Report 6163569-5 (Version None)
Quarter: 2009Q2

REPORT INFORMATION
  Report Type: 
  Country: None (occurrence: None)
  Receive Date: 20090420
  Receipt Date: 20090420
  Transmission Date: 20091009
  Serious: Yes (Other)
  Sender: FDA-Public Use
  Company Number: None

PATIENT
  Age: 21 Year
  Sex: Male
  Weight: 69.8539 kg

DRUGS (3)
  1. CREST PRO-HEALTH MOUTH WASH 20ML PROCTER AND GAMBLE [Suspect]
     Indication: BREATH ODOUR
     Dosage: 20ML TWICE A DAY PO
     Route: 048
     Dates: start: 20090412, end: 20090412
  2. CREST PRO-HEALTH MOUTH WASH 20ML PROCTER AND GAMBLE [Suspect]
     Indication: DENTAL DISORDER PROPHYLAXIS
     Dosage: 20ML TWICE A DAY PO
     Route: 048
     Dates: start: 20090412, end: 20090412
  3. CREST PRO-HEALTH MOUTH WASH 20ML PROCTER AND GAMBLE [Suspect]
     Indication: GINGIVITIS
     Dosage: 20ML TWICE A DAY PO
     Route: 048
     Dates: start: 20090412, end: 20090412

REACTIONS (2)
  - GLOSSODYNIA [None]
  - ORAL DISCOMFORT [None]
